FAERS Safety Report 7079313-3 (Version None)
Quarter: 2010Q4

REPORT INFORMATION
  Report Type: 
  Country: None (occurrence: None)
  Receive Date: 20101102
  Receipt Date: 20090921
  Transmission Date: 20110411
  Serious: No
  Sender: FDA-Public Use
  Company Number: A0808903A

PATIENT
  Sex: Female

DRUGS (1)
  1. RYTHMOL SR [Suspect]

REACTIONS (1)
  - PANCREATIC DISORDER [None]
